FAERS Safety Report 8291527-3 (Version None)
Quarter: 2012Q2

REPORT INFORMATION
  Report Type: 
  Country: None (occurrence: None)
  Receive Date: 20120417
  Receipt Date: 20120416
  Transmission Date: 20120825
  Serious: No
  Sender: FDA-Public Use
  Company Number: US-PFIZER INC-2012093988

PATIENT
  Sex: Male
  Weight: 66.667 kg

DRUGS (2)
  1. CHANTIX [Suspect]
     Dosage: 0.5 MG, 2X/DAY
     Dates: start: 20120401
  2. CHANTIX [Suspect]
     Indication: SMOKING CESSATION THERAPY
     Dosage: 0.5 MG, DAILY
     Dates: start: 20120401, end: 20120401

REACTIONS (5)
  - FEELING ABNORMAL [None]
  - DEREALISATION [None]
  - FATIGUE [None]
  - HYPERSOMNIA [None]
  - EATING DISORDER [None]
